FAERS Safety Report 15478565 (Version 1)
Quarter: 2018Q4

REPORT INFORMATION
  Report Type: Spontaneous
  Country: RO (occurrence: RO)
  Receive Date: 20181009
  Receipt Date: 20181009
  Transmission Date: 20190205
  Serious: Yes (Hospitalization)
  Sender: FDA-Public Use
  Company Number: RO-BAYER-2018-187624

PATIENT
  Age: 58 Year
  Sex: Female

DRUGS (5)
  1. IODINE. [Concomitant]
     Active Substance: IODINE
     Indication: PAPILLARY THYROID CANCER
     Dosage: UNK
  2. EUTHYROX [Concomitant]
     Active Substance: LEVOTHYROXINE SODIUM
     Indication: POST PROCEDURAL HYPOTHYROIDISM
     Dosage: 100 ?G, QD
     Route: 048
     Dates: start: 201411
  3. SIOFOR [Concomitant]
     Active Substance: METFORMIN HYDROCHLORIDE
     Dosage: 1000 MG, QD
     Route: 048
     Dates: start: 2012
  4. ULTRAVIST [Suspect]
     Active Substance: IOPROMIDE
     Indication: COMPUTERISED TOMOGRAM
     Dosage: 160 ML, ONCE
     Route: 042
     Dates: start: 20181004, end: 20181004
  5. ROSUVASTATIN. [Concomitant]
     Active Substance: ROSUVASTATIN
     Dosage: 20 MG, QD
     Route: 048

REACTIONS (5)
  - Pruritus [Recovered/Resolved]
  - Hyperaemia [Recovered/Resolved]
  - Rash erythematous [Recovered/Resolved]
  - Rash pustular [Recovered/Resolved]
  - Angioedema [Recovered/Resolved]

NARRATIVE: CASE EVENT DATE: 20181004
